FAERS Safety Report 7061543-8 (Version None)
Quarter: 2010Q4

REPORT INFORMATION
  Report Type: 
  Country: None (occurrence: None)
  Receive Date: 20101026
  Receipt Date: 20101013
  Transmission Date: 20110411
  Serious: No
  Sender: FDA-Public Use
  Company Number: US-ELI_LILLY_AND_COMPANY-US201010003822

PATIENT
  Sex: Female

DRUGS (4)
  1. CYMBALTA [Suspect]
  2. OXYCODONE HCL [Concomitant]
  3. TYLENOL (CAPLET) [Concomitant]
  4. MUSCLE RELAXANTS [Concomitant]

REACTIONS (1)
  - HEPATIC ENZYME INCREASED [None]
